FAERS Safety Report 12341893 (Version 4)
Quarter: 2016Q3

REPORT INFORMATION
  Report Type: Spontaneous
  Country: US (occurrence: US)
  Receive Date: 20160506
  Receipt Date: 20160817
  Transmission Date: 20161109
  Serious: No
  Sender: FDA-Public Use
  Company Number: US-ACTELION-A-US2016-134700

PATIENT
  Age: 65 Year
  Sex: Female

DRUGS (2)
  1. TRIAMCINOLONE ACETONIDE. [Concomitant]
     Active Substance: TRIAMCINOLONE ACETONIDE
  2. VALCHLOR [Suspect]
     Active Substance: MECHLORETHAMINE
     Indication: MYCOSIS FUNGOIDES
     Dosage: UNK, QD
     Route: 061
     Dates: start: 20150315

REACTIONS (7)
  - Application site irritation [Unknown]
  - Application site pain [Unknown]
  - Application site pruritus [Unknown]
  - Application site vesicles [Unknown]
  - Application site discharge [Unknown]
  - Application site erosion [Unknown]
  - Application site exfoliation [Unknown]
